FAERS Safety Report 8218404-8 (Version None)
Quarter: 2012Q1

REPORT INFORMATION
  Report Type: 
  Country: None (occurrence: None)
  Receive Date: 20120319
  Receipt Date: 20120306
  Transmission Date: 20120608
  Serious: Yes (Other)
  Sender: FDA-Public Use
  Company Number: PL-GLAXOSMITHKLINE-B0788789A

PATIENT
  Sex: Female

DRUGS (2)
  1. LAMIVUDINE (EPIVIR HBV) [Suspect]
     Indication: HEPATITIS B
     Route: 048
     Dates: start: 20070101
  2. HEPSERA [Suspect]
     Indication: HEPATITIS B
     Route: 048
     Dates: start: 20080527, end: 20100126

REACTIONS (1)
  - RENAL FAILURE [None]
